FAERS Safety Report 15186314 (Version 1)
Quarter: 2018Q3

REPORT INFORMATION
  Report Type: Report from Study
  Country: US (occurrence: US)
  Receive Date: 20180723
  Receipt Date: 20180723
  Transmission Date: 20181010
  Serious: No
  Sender: FDA-Public Use
  Company Number: US-EXELIXIS-CABO-17011731

PATIENT
  Sex: Male

DRUGS (13)
  1. CABOMETYX [Suspect]
     Active Substance: CABOZANTINIB S-MALATE
     Indication: RENAL CANCER
     Dosage: 60 MG, QD
     Route: 048
     Dates: start: 20170128
  2. ATORVASTATIN [Concomitant]
     Active Substance: ATORVASTATIN
  3. OMEGA 3 [Concomitant]
     Active Substance: OMEGA-3 FATTY ACIDS
  4. ASPIRIN. [Concomitant]
     Active Substance: ASPIRIN
  5. GABAPENTIN. [Concomitant]
     Active Substance: GABAPENTIN
  6. LISINOPRIL. [Concomitant]
     Active Substance: LISINOPRIL
  7. AMLODIPINE [Concomitant]
     Active Substance: AMLODIPINE BESYLATE
  8. CABOMETYX [Suspect]
     Active Substance: CABOZANTINIB S-MALATE
     Dosage: 40 MG, QD
     Route: 048
     Dates: start: 20170419
  9. FLAXSEED [Concomitant]
     Active Substance: FLAX SEED
  10. JANUMET [Concomitant]
     Active Substance: METFORMIN HYDROCHLORIDE\SITAGLIPTIN PHOSPHATE
  11. LEVOTHYROXINE. [Concomitant]
     Active Substance: LEVOTHYROXINE
  12. CLINDAMYCIN. [Concomitant]
     Active Substance: CLINDAMYCIN
  13. NORCO [Concomitant]
     Active Substance: ACETAMINOPHEN\HYDROCODONE BITARTRATE

REACTIONS (3)
  - Diarrhoea [Not Recovered/Not Resolved]
  - Nausea [Unknown]
  - Vomiting [Unknown]
